FAERS Safety Report 20097706 (Version 1)
Quarter: 2021Q4

REPORT INFORMATION
  Report Type: Spontaneous
  Country: US (occurrence: US)
  Receive Date: 20211122
  Receipt Date: 20211122
  Transmission Date: 20220303
  Serious: No
  Sender: FDA-Public Use
  Company Number: US-ANIPHARMA-2021-US-016158

PATIENT
  Age: 72 Year
  Sex: Female
  Weight: 53.52 kg

DRUGS (4)
  1. FLECAINIDE ACETATE [Suspect]
     Active Substance: FLECAINIDE ACETATE
     Indication: Atrial fibrillation
     Dosage: 1 QAM AND 1QPM
     Route: 048
     Dates: start: 202101
  2. LISINOPRIL [Suspect]
     Active Substance: LISINOPRIL
  3. WARFARIN [Suspect]
     Active Substance: WARFARIN
  4. METOPROLOL [Suspect]
     Active Substance: METOPROLOL

REACTIONS (2)
  - Dizziness [Recovered/Resolved]
  - Nausea [Recovered/Resolved]

NARRATIVE: CASE EVENT DATE: 20210101
